FAERS Safety Report 5788318-1 (Version None)
Quarter: 2008Q2

REPORT INFORMATION
  Report Type: 
  Country: None (occurrence: None)
  Receive Date: 20080623
  Receipt Date: 20080608
  Transmission Date: 20081010
  Serious: Yes (Other)
  Sender: FDA-Public Use
  Company Number: 2008014765

PATIENT
  Sex: Male

DRUGS (1)
  1. ROGAINE [Suspect]
     Indication: ALOPECIA
     Dosage: ^AS DIRECTED^, TOPICAL
     Route: 061

REACTIONS (3)
  - DRY SKIN [None]
  - PRURITUS [None]
  - SWELLING FACE [None]
